FAERS Safety Report 19359470 (Version 1)
Quarter: 2021Q2

REPORT INFORMATION
  Report Type: Spontaneous
  Country: TW (occurrence: TW)
  Receive Date: 20210602
  Receipt Date: 20210602
  Transmission Date: 20210717
  Serious: Yes (Hospitalization, Other)
  Sender: FDA-Public Use
  Company Number: TW-ACCORD-226471

PATIENT
  Age: 24 Year
  Sex: Male

DRUGS (2)
  1. FUROSEMIDE. [Suspect]
     Active Substance: FUROSEMIDE
     Indication: PRODUCT USED FOR UNKNOWN INDICATION
  2. CARBIMAZOLE [Concomitant]
     Active Substance: CARBIMAZOLE
     Indication: BASEDOW^S DISEASE

REACTIONS (7)
  - Monoplegia [Recovered/Resolved]
  - Hypochloraemia [Unknown]
  - Electrocardiogram U-wave prominent [Unknown]
  - Atrioventricular block first degree [Unknown]
  - Hypokalaemia [Recovering/Resolving]
  - Metabolic alkalosis [Unknown]
  - Drug abuse [Unknown]
